FAERS Safety Report 16420121 (Version 1)
Quarter: 2019Q2

REPORT INFORMATION
  Report Type: Spontaneous
  Country: US (occurrence: US)
  Receive Date: 20190504
  Receipt Date: 20190504
  Transmission Date: 20190711
  Serious: Yes (Hospitalization)
  Sender: FDA-Public Use
  Company Number: None

PATIENT
  Age: 42 Year
  Sex: Female
  Weight: 109 kg

DRUGS (4)
  1. ETOPOSIDE (VP-16) [Suspect]
     Active Substance: ETOPOSIDE
     Dates: end: 20190218
  2. METHOTREXATE. [Suspect]
     Active Substance: METHOTREXATE
     Dates: end: 20190214
  3. CYTARABINE. [Suspect]
     Active Substance: CYTARABINE
     Dates: end: 20190218
  4. ONCASPAR [Suspect]
     Active Substance: PEGASPARGASE
     Dates: end: 20190218

REACTIONS (5)
  - Enterobacter bacteraemia [None]
  - Pneumonia bacterial [None]
  - Pneumonia fungal [None]
  - Febrile neutropenia [None]
  - Enterobacter infection [None]

NARRATIVE: CASE EVENT DATE: 20190226
